FAERS Safety Report 4612062-7 (Version None)
Quarter: 2005Q2

REPORT INFORMATION
  Report Type: 
  Country: None (occurrence: None)
  Receive Date: 20050308
  Receipt Date: 20050103
  Transmission Date: 20051028
  Serious: Yes (Other)
  Sender: FDA-Public Use
  Company Number: 2005UW00045

PATIENT
  Age: 56 Year
  Sex: Male
  Weight: 70.306 kg

DRUGS (3)
  1. CRESTOR [Suspect]
     Indication: BLOOD CHOLESTEROL INCREASED
     Dosage: 10 MG DAILY PO
     Route: 048
     Dates: start: 20040101
  2. ALTACE [Concomitant]
  3. ZETIA [Concomitant]

REACTIONS (3)
  - BACK PAIN [None]
  - DYSURIA [None]
  - POLLAKIURIA [None]
